FAERS Safety Report 5969047-8 (Version None)
Quarter: 2008Q4

REPORT INFORMATION
  Report Type: 
  Country: None (occurrence: None)
  Receive Date: 20081125
  Receipt Date: 20081125
  Transmission Date: 20090506
  Serious: Yes (Hospitalization)
  Sender: FDA-Public Use
  Company Number: None

PATIENT
  Sex: Male
  Weight: 80.72 kg

DRUGS (2)
  1. CISPLATIN [Suspect]
     Dosage: 150 MG
     Dates: start: 20081103, end: 20081103
  2. NAVELBINE [Suspect]
     Dosage: 120 MG
     Dates: end: 20081110

REACTIONS (7)
  - ANAEMIA [None]
  - CHILLS [None]
  - DEHYDRATION [None]
  - HYPOTENSION [None]
  - NEUTROPENIC INFECTION [None]
  - OROPHARYNGEAL PAIN [None]
  - PYREXIA [None]
